FAERS Safety Report 17189517 (Version 1)
Quarter: 2019Q4

REPORT INFORMATION
  Report Type: Spontaneous
  Country: NL (occurrence: NL)
  Receive Date: 20191223
  Receipt Date: 20191223
  Transmission Date: 20200122
  Serious: Yes (Other)
  Sender: FDA-Public Use
  Company Number: NL-TEVA-2019-NL-1154577

PATIENT
  Age: 25 Year
  Sex: Female
  Weight: 68 kg

DRUGS (2)
  1. NITROFURANTOINE CAPSULE, 100 MG (MILLIGRAM) [Suspect]
     Active Substance: NITROFURANTOIN
     Indication: CYSTITIS
     Dosage: 3X DAILY (DOSSERING I^M NOT SURE ANYMORE) 100 MG
     Dates: start: 2019
  2. ANTICONCEPTIEPIL [Concomitant]

REACTIONS (1)
  - Intracranial pressure increased [Recovered/Resolved]

NARRATIVE: CASE EVENT DATE: 2019
